FAERS Safety Report 5612054-5 (Version None)
Quarter: 2008Q1

REPORT INFORMATION
  Report Type: 
  Country: None (occurrence: None)
  Receive Date: 20080204
  Receipt Date: 20080130
  Transmission Date: 20080703
  Serious: Yes (Death)
  Sender: FDA-Public Use
  Company Number: US-BRACCO-BDI-010078

PATIENT
  Age: 40 Year
  Sex: Male
  Weight: 92 kg

DRUGS (3)
  1. PROHANCE [Suspect]
     Indication: NUCLEAR MAGNETIC RESONANCE IMAGING BRAIN
     Route: 042
     Dates: start: 20070815, end: 20070815
  2. PROHANCE [Suspect]
     Indication: NEUROLOGICAL SYMPTOM
     Route: 042
     Dates: start: 20070815, end: 20070815
  3. EPINEPHRINE [Concomitant]
     Route: 065
     Dates: end: 20070815

REACTIONS (1)
  - ANAPHYLACTOID REACTION [None]
